FAERS Safety Report 5418726-X (Version None)
Quarter: 2007Q3

REPORT INFORMATION
  Report Type: 
  Country: None (occurrence: None)
  Receive Date: 20070817
  Receipt Date: 20070807
  Transmission Date: 20080115
  Serious: Yes (Other)
  Sender: FDA-Public Use
  Company Number: US-PFIZER INC-2007048372

PATIENT
  Sex: Female
  Weight: 68.181 kg

DRUGS (11)
  1. CHANTIX [Suspect]
     Indication: SMOKING CESSATION THERAPY
     Dates: start: 20070412, end: 20070606
  2. INDOMETHACIN [Suspect]
     Indication: GOUT
  3. ASPIRIN [Suspect]
  4. SIMVASTATIN [Concomitant]
  5. ELAVIL [Concomitant]
  6. ASPIRIN [Concomitant]
  7. CALCIUM CHLORIDE [Concomitant]
  8. OMEGA 3 [Concomitant]
  9. ASCORBIC ACID [Concomitant]
  10. MAGNESIUM SULFATE [Concomitant]
  11. PREMARIN [Concomitant]

REACTIONS (2)
  - GOUT [None]
  - HYPERTENSION [None]
